FAERS Safety Report 6085634-3 (Version None)
Quarter: 2009Q1

REPORT INFORMATION
  Report Type: 
  Country: None (occurrence: None)
  Receive Date: 20090220
  Receipt Date: 20090216
  Transmission Date: 20090719
  Serious: Yes (Life-Threatening, Hospitalization)
  Sender: FDA-Public Use
  Company Number: US-ELI_LILLY_AND_COMPANY-US200902004700

PATIENT
  Sex: Male

DRUGS (3)
  1. ALIMTA [Suspect]
     Dosage: 940 MG, UNK
     Dates: start: 20090213
  2. CARBOPLATIN [Concomitant]
     Route: 042
  3. DECADRON                                /CAN/ [Concomitant]
     Indication: PREMEDICATION

REACTIONS (1)
  - RESPIRATORY DISTRESS [None]
